FAERS Safety Report 15843389 (Version 14)
Quarter: 2020Q3

REPORT INFORMATION
  Report Type: Spontaneous
  Country: JP (occurrence: JP)
  Receive Date: 20190118
  Receipt Date: 20200923
  Transmission Date: 20201102
  Serious: Yes (Death, Life-Threatening, Hospitalization, Disabling, Other)
  Sender: FDA-Public Use
  Company Number: JP-009507513-1901JPN000567J

PATIENT
  Age: 77 Year
  Sex: Male
  Weight: 73 kg

DRUGS (6)
  1. KEYTRUDA [Suspect]
     Active Substance: PEMBROLIZUMAB
     Indication: BLADDER CANCER
     Dosage: 200 MILLIGRAM, Q3W
     Route: 041
     Dates: start: 20181214, end: 20181214
  2. LOXOPROFEN [Concomitant]
     Active Substance: LOXOPROFEN
     Indication: ABDOMINAL PAIN LOWER
     Dosage: UNK, PRESCRIBED AS NEEDED
     Dates: start: 20181215
  3. TAMSULOSIN HYDROCHLORIDE. [Concomitant]
     Active Substance: TAMSULOSIN HYDROCHLORIDE
     Indication: DYSURIA
     Dosage: 0.2 MILLIGRAM, QD
     Route: 048
     Dates: start: 20180817, end: 20190108
  4. BETANIS [Concomitant]
     Active Substance: MIRABEGRON
     Indication: POLLAKIURIA
     Dosage: 50 MILLIGRAM, QD
     Route: 048
     Dates: start: 20180817, end: 20190108
  5. ASVERIN [Concomitant]
     Indication: NASOPHARYNGITIS
     Dosage: 40 MILLIGRAM, TID
     Route: 048
     Dates: start: 20181215, end: 20181220
  6. REBAMIPIDE [Concomitant]
     Active Substance: REBAMIPIDE
     Indication: ABDOMINAL DISCOMFORT
     Dosage: 100 MILLIGRAM, TID
     Route: 048
     Dates: start: 20180817, end: 20190108

REACTIONS (14)
  - Immune-mediated hypothyroidism [Unknown]
  - Alanine aminotransferase increased [Not Recovered/Not Resolved]
  - Immune-mediated myocarditis [Fatal]
  - Myasthenia gravis [Fatal]
  - Malignant neoplasm progression [Recovering/Resolving]
  - Interstitial lung disease [Unknown]
  - Blood creatinine increased [Not Recovered/Not Resolved]
  - Aspartate aminotransferase increased [Recovering/Resolving]
  - Chronic kidney disease [Unknown]
  - Hepatic function abnormal [Unknown]
  - Troponin T increased [Not Recovered/Not Resolved]
  - Myositis [Unknown]
  - Blood creatine phosphokinase increased [Recovering/Resolving]
  - Glucose tolerance impaired [Unknown]

NARRATIVE: CASE EVENT DATE: 20181228
